FAERS Safety Report 20993552 (Version 1)
Quarter: 2022Q2

REPORT INFORMATION
  Report Type: Spontaneous
  Country: US (occurrence: None)
  Receive Date: 20220621
  Receipt Date: 20220621
  Transmission Date: 20220721
  Serious: Yes (Life-Threatening, Hospitalization)
  Sender: FDA-Public Use
  Company Number: None

PATIENT
  Age: 29 Year
  Sex: Female
  Weight: 68 kg

DRUGS (5)
  1. FLUTICASONE PROPIONATE [Suspect]
     Active Substance: FLUTICASONE PROPIONATE
     Indication: Dyspnoea
     Dosage: FREQUENCY : AT BEDTIME;?
     Route: 045
     Dates: start: 20211020, end: 20211104
  2. OLANZAPINE [Concomitant]
     Active Substance: OLANZAPINE
  3. VITAMIN B6 [Concomitant]
     Active Substance: PYRIDOXINE HYDROCHLORIDE
  4. IRON [Concomitant]
     Active Substance: IRON
  5. OMEGA 3 [Concomitant]
     Active Substance: CAPSAICIN

REACTIONS (2)
  - Psychotic disorder [None]
  - Drug interaction [None]

NARRATIVE: CASE EVENT DATE: 20211029
